FAERS Safety Report 11340248 (Version 3)
Quarter: 2015Q3

REPORT INFORMATION
  Report Type: Spontaneous
  Country: US (occurrence: None)
  Receive Date: 20150803
  Receipt Date: 20150911
  Transmission Date: 20151125
  Serious: Yes (Hospitalization)
  Sender: FDA-Public Use
  Company Number: 1713747-2015-999237

PATIENT
  Age: 70 Year
  Sex: Male

DRUGS (3)
  1. DELFLEX [Suspect]
     Active Substance: CALCIUM CHLORIDE\DEXTROSE MONOHYDRATE\MAGNESIUM CHLORIDE\SODIUM CHLORIDE\SODIUM LACTATE
     Indication: PERITONEAL DIALYSIS
     Route: 033
  2. LYBERTY CYCLER [Concomitant]
  3. LYBERTY CYCLER CASSETTE [Concomitant]

REACTIONS (5)
  - Lung disorder [None]
  - Fluid overload [None]
  - Device use error [None]
  - Cerebrovascular accident [None]
  - Cardiac failure congestive [None]

NARRATIVE: CASE EVENT DATE: 20150721
